FAERS Safety Report 20843381 (Version 1)
Quarter: 2022Q2

REPORT INFORMATION
  Report Type: Other
  Country: DE (occurrence: None)
  Receive Date: 20220518
  Receipt Date: 20220518
  Transmission Date: 20220721
  Serious: Yes (Death, Hospitalization)
  Sender: FDA-Public Use
  Company Number: DE-ROCHE-3097454

PATIENT
  Age: 66 Year
  Sex: Male

DRUGS (4)
  1. OBINUTUZUMAB [Suspect]
     Active Substance: OBINUTUZUMAB
     Indication: Follicular lymphoma
     Dosage: (MAINTENANCE THERAPY: CYCLE 10)
     Route: 042
     Dates: start: 20220412, end: 20220426
  2. ACYCLOVIR [Concomitant]
     Active Substance: ACYCLOVIR
  3. SULFAMETHOXAZOLE\TRIMETHOPRIM [Concomitant]
     Active Substance: SULFAMETHOXAZOLE\TRIMETHOPRIM
  4. AMPHO-MORONAL [Concomitant]
     Active Substance: AMPHOTERICIN B

REACTIONS (1)
  - COVID-19 pneumonia [Fatal]

NARRATIVE: CASE EVENT DATE: 20220412
